FAERS Safety Report 9145544 (Version 1)
Quarter: 2013Q1

REPORT INFORMATION
  Report Type: Spontaneous
  Country: US (occurrence: None)
  Receive Date: 20130227
  Receipt Date: 20130227
  Transmission Date: 20140127
  Serious: Yes (Life-Threatening, Hospitalization)
  Sender: FDA-Public Use
  Company Number: None

PATIENT
  Age: 66 Year
  Sex: Male
  Weight: 81.8 kg

DRUGS (1)
  1. PROPOFOL [Suspect]
     Indication: INDUCTION OF ANAESTHESIA
     Dosage: 140 MG   ONCE   IV?10/10/2012  THRU  10/10/2012
     Route: 042
     Dates: start: 20121010, end: 20121010

REACTIONS (4)
  - Anaphylactic reaction [None]
  - Rash [None]
  - Pulseless electrical activity [None]
  - Urticaria [None]
